FAERS Safety Report 16451527 (Version 1)
Quarter: 2019Q2

REPORT INFORMATION
  Report Type: Spontaneous
  Country: US (occurrence: US)
  Receive Date: 20190509
  Receipt Date: 20190509
  Transmission Date: 20190711
  Serious: No
  Sender: FDA-Public Use
  Company Number: None

PATIENT
  Age: 52 Year
  Sex: Female

DRUGS (1)
  1. STELARA [Suspect]
     Active Substance: USTEKINUMAB
     Indication: PSORIASIS
     Dosage: Q12W
     Route: 058
     Dates: start: 201904

REACTIONS (2)
  - Injection site pruritus [None]
  - Drug ineffective [None]

NARRATIVE: CASE EVENT DATE: 201904
